FAERS Safety Report 4993178-2 (Version None)
Quarter: 2006Q1

REPORT INFORMATION
  Report Type: 
  Country: None (occurrence: None)
  Receive Date: 20060313
  Receipt Date: 20051121
  Transmission Date: 20060701
  Serious: No
  Sender: FDA-Public Use
  Company Number: 2005-BP-17129BP

PATIENT
  Sex: Female

DRUGS (5)
  1. SPIRIVA [Suspect]
     Indication: CHRONIC OBSTRUCTIVE PULMONARY DISEASE
     Dosage: 18 MCG (18 MCG,1 QD),IH
     Dates: start: 20040901
  2. SPIRIVA [Suspect]
  3. ALBUTEROL [Concomitant]
  4. NEXIUM [Concomitant]
  5. PREDNISONE TAB [Concomitant]

REACTIONS (1)
  - DYSGEUSIA [None]
